FAERS Safety Report 15200110 (Version 2)
Quarter: 2019Q2

REPORT INFORMATION
  Report Type: Spontaneous
  Country: US (occurrence: US)
  Receive Date: 20180726
  Receipt Date: 20190516
  Transmission Date: 20190711
  Serious: Yes (Other)
  Sender: FDA-Public Use
  Company Number: US-BRISTOL-MYERS SQUIBB COMPANY-BMS-2018-067443

PATIENT
  Age: 45 Year
  Sex: Female

DRUGS (1)
  1. SPRYCEL [Suspect]
     Active Substance: DASATINIB
     Indication: ACUTE MYELOID LEUKAEMIA
     Dosage: 100 MG, QD
     Route: 048
     Dates: start: 20140630

REACTIONS (5)
  - Bed bug infestation [Unknown]
  - Product use in unapproved indication [Unknown]
  - Rash [Unknown]
  - Increased tendency to bruise [Unknown]
  - Malaise [Unknown]

NARRATIVE: CASE EVENT DATE: 20180716
